FAERS Safety Report 5248004-3 (Version None)
Quarter: 2007Q1

REPORT INFORMATION
  Report Type: 
  Country: None (occurrence: None)
  Receive Date: 20070227
  Receipt Date: 20070216
  Transmission Date: 20070707
  Serious: Yes (Other)
  Sender: FDA-Public Use
  Company Number: JP-BRISTOL-MYERS SQUIBB COMPANY-13683883

PATIENT
  Age: 46 Year
  Sex: Female

DRUGS (1)
  1. MAXIPIME [Suspect]
     Indication: TONSILLITIS
     Route: 041
     Dates: start: 20070216, end: 20070216

REACTIONS (3)
  - BLOOD PRESSURE DECREASED [None]
  - GENERALISED ERYTHEMA [None]
  - VOMITING [None]
